FAERS Safety Report 6212809-2 (Version None)
Quarter: 2009Q2

REPORT INFORMATION
  Report Type: 
  Country: None (occurrence: None)
  Receive Date: 20090601
  Receipt Date: 20090601
  Transmission Date: 20091009
  Serious: No
  Sender: FDA-Public Use
  Company Number: None

PATIENT
  Sex: Female

DRUGS (1)
  1. OXCARBAZEPINE [Suspect]

REACTIONS (3)
  - CONJUNCTIVITIS [None]
  - OEDEMA PERIPHERAL [None]
  - PRODUCT SUBSTITUTION ISSUE [None]
